FAERS Safety Report 8628359 (Version 5)
Quarter: 2012Q4

REPORT INFORMATION
  Report Type: 
  Country: CA (occurrence: CA)
  Receive Date: 20120621
  Receipt Date: 20121004
  Transmission Date: 20130627
  Serious: Yes (Hospitalization, Other)
  Sender: FDA-Public Use
  Company Number: PHHY2012CA043808

PATIENT
  Age: 59 Year
  Sex: Female

DRUGS (3)
  1. ZOMETA [Suspect]
     Indication: BREAST CANCER METASTATIC
     Dosage: 4 mg, every 4 weeks
     Route: 042
     Dates: start: 20110912, end: 20120104
  2. ZOMETA [Suspect]
     Dosage: 4 mg, every 4 weeks
     Route: 042
     Dates: start: 20120910
  3. ZOMETA [Suspect]
     Dosage: 4 mg, every 4 weeks
     Route: 042
     Dates: end: 20120813

REACTIONS (13)
  - Sepsis [Recovered/Resolved]
  - Malaise [Unknown]
  - Neoplasm progression [Unknown]
  - Malignant neoplasm progression [Unknown]
  - Anion gap decreased [Unknown]
  - Blood alkaline phosphatase increased [Unknown]
  - Aspartate aminotransferase increased [Unknown]
  - Pain in extremity [Unknown]
  - Fluid intake reduced [Unknown]
  - Pain in jaw [Unknown]
  - Toothache [Unknown]
  - Dizziness [Recovered/Resolved]
  - Headache [Recovered/Resolved]
